FAERS Safety Report 8110383-7 (Version None)
Quarter: 2012Q1

REPORT INFORMATION
  Report Type: 
  Country: None (occurrence: None)
  Receive Date: 20120202
  Receipt Date: 20120125
  Transmission Date: 20120608
  Serious: Yes (Life-Threatening, Hospitalization, Other)
  Sender: FDA-Public Use
  Company Number: US-RB-035233-11

PATIENT
  Age: 48 Year
  Sex: Female

DRUGS (7)
  1. SEROQUEL [Concomitant]
     Indication: DEPRESSION
     Dosage: 600 MG DAILY TAPERED TO 200 MG DAILY
     Route: 065
  2. NEBULIZER TREATMENTS [Concomitant]
     Indication: CHRONIC OBSTRUCTIVE PULMONARY DISEASE
     Dosage: DAILY
     Route: 065
     Dates: start: 20060101
  3. OXYGEN [Concomitant]
     Indication: EMPHYSEMA
     Dosage: CONTINUOUS DAILY
     Route: 055
     Dates: start: 20080101
  4. CLONAZEPAM [Concomitant]
     Indication: ANXIETY
     Route: 065
  5. SUBOXONE [Suspect]
     Indication: DRUG DEPENDENCE
     Dosage: 24 MG TAPERED TO 8 MG DAILY
     Route: 060
     Dates: start: 20100101
  6. CLONAZEPAM [Concomitant]
     Indication: RESTLESS LEGS SYNDROME
     Route: 065
  7. OXYGEN [Concomitant]
     Indication: CHRONIC OBSTRUCTIVE PULMONARY DISEASE
     Dosage: CONTINUOUS DAILY
     Route: 055
     Dates: start: 20080101

REACTIONS (11)
  - UNDERDOSE [None]
  - INFLUENZA [None]
  - ASTHENIA [None]
  - HYPOXIA [None]
  - IMMUNE SYSTEM DISORDER [None]
  - CONDITION AGGRAVATED [None]
  - BLOOD GLUCOSE INCREASED [None]
  - DRUG WITHDRAWAL SYNDROME [None]
  - RESPIRATORY TRACT INFECTION VIRAL [None]
  - EMPHYSEMA [None]
  - HEADACHE [None]
